FAERS Safety Report 17033635 (Version 1)
Quarter: 2019Q4

REPORT INFORMATION
  Report Type: Spontaneous
  Country: US (occurrence: US)
  Receive Date: 20191014
  Receipt Date: 20191014
  Transmission Date: 20200122
  Serious: No
  Sender: FDA-Public Use
  Company Number: None

PATIENT
  Sex: Female

DRUGS (16)
  1. CITRACAL [Concomitant]
     Active Substance: CALCIUM CITRATE
  2. ZEGERID [Concomitant]
     Active Substance: OMEPRAZOLE\SODIUM BICARBONATE
  3. GAVISCON [Concomitant]
     Active Substance: ALUMINUM HYDROXIDE\MAGNESIUM CARBONATE
  4. MELOXICAM. [Concomitant]
     Active Substance: MELOXICAM
  5. ZOLPIDEM [Concomitant]
     Active Substance: ZOLPIDEM TARTRATE
  6. MULTI VITAMIN [Concomitant]
     Active Substance: VITAMINS
  7. OCALIVA [Suspect]
     Active Substance: OBETICHOLIC ACID
  8. VITAMIN D3 [Concomitant]
     Active Substance: CHOLECALCIFEROL
  9. FLUOXETINE [Concomitant]
     Active Substance: FLUOXETINE HYDROCHLORIDE
  10. NEXIUM [Concomitant]
     Active Substance: ESOMEPRAZOLE MAGNESIUM
  11. PRAVASTATIN. [Concomitant]
     Active Substance: PRAVASTATIN
  12. PROBIOTIC [Concomitant]
     Active Substance: PROBIOTICS NOS
  13. URSODIOL. [Concomitant]
     Active Substance: URSODIOL
  14. FORTEO [Concomitant]
     Active Substance: TERIPARATIDE
  15. LORAZEPAM. [Concomitant]
     Active Substance: LORAZEPAM
  16. OXYCODONE [Concomitant]
     Active Substance: OXYCODONE

REACTIONS (2)
  - Therapy cessation [None]
  - Adverse drug reaction [None]
